FAERS Safety Report 4809776-2 (Version None)
Quarter: 2005Q4

REPORT INFORMATION
  Report Type: 
  Country: None (occurrence: None)
  Receive Date: 20051024
  Receipt Date: 20051010
  Transmission Date: 20060501
  Serious: Yes (Hospitalization, Other)
  Sender: FDA-Public Use
  Company Number: 2004S1000181

PATIENT
  Age: 52 Year
  Sex: Male
  Weight: 80 kg

DRUGS (3)
  1. CUBICIN [Suspect]
     Indication: BURSITIS INFECTIVE
     Dosage: 480 MG; Q24H; IV
     Route: 042
     Dates: start: 20040723, end: 20040826
  2. PREDNISONE [Concomitant]
  3. VANCOMYCIN [Concomitant]

REACTIONS (20)
  - BACK PAIN [None]
  - BACTERAEMIA [None]
  - CELLULITIS [None]
  - COMPRESSION FRACTURE [None]
  - CONDITION AGGRAVATED [None]
  - CONSTIPATION [None]
  - DISEASE RECURRENCE [None]
  - HEPATIC ENCEPHALOPATHY [None]
  - INTERVERTEBRAL DISCITIS [None]
  - KYPHOSIS [None]
  - LACTIC ACIDOSIS [None]
  - LARGE INTESTINE PERFORATION [None]
  - OSTEOMYELITIS [None]
  - PNEUMATOSIS [None]
  - PNEUMATOSIS INTESTINALIS [None]
  - RENAL FAILURE [None]
  - SPINAL COMPRESSION FRACTURE [None]
  - SPINAL CORD COMPRESSION [None]
  - SPINAL FRACTURE [None]
  - VOMITING [None]
